FAERS Safety Report 5195787-7 (Version None)
Quarter: 2006Q4

REPORT INFORMATION
  Report Type: 
  Country: None (occurrence: None)
  Receive Date: 20061227
  Receipt Date: 20061227
  Transmission Date: 20070319
  Serious: Yes (Life-Threatening)
  Sender: FDA-Public Use
  Company Number: None

PATIENT
  Age: 53 Year
  Sex: Male

DRUGS (8)
  1. ACTIQUE [Suspect]
     Indication: PAIN
     Route: 048
  2. ACCUPRIL [Concomitant]
  3. TOPOROL [Concomitant]
  4. EXCEL [Concomitant]
  5. SYMBOLTA [Concomitant]
  6. METHADONE HCL [Concomitant]
  7. SEROQUES [Concomitant]
  8. MEHTYLPHENIDALE [Concomitant]

REACTIONS (8)
  - DIARRHOEA [None]
  - FEELING ABNORMAL [None]
  - GLOSSODYNIA [None]
  - PARAESTHESIA [None]
  - PHARMACEUTICAL PRODUCT COMPLAINT [None]
  - SCAR [None]
  - TONGUE DISORDER [None]
  - VOMITING [None]
